FAERS Safety Report 4382991-0 (Version None)
Quarter: 2004Q2

REPORT INFORMATION
  Report Type: 
  Country: None (occurrence: None)
  Receive Date: 20040622
  Receipt Date: 20040610
  Transmission Date: 20050107
  Serious: Yes (Life-Threatening, Hospitalization, Other)
  Sender: FDA-Public Use
  Company Number: 04-00274

PATIENT
  Sex: Female

DRUGS (2)
  1. POTASSIUM CHLORIDE ORAL SOLUTION, USP 20% (SUGAR FREE) (ALPHARMA) [Suspect]
     Indication: HYPOKALAEMIA
     Dosage: 40MEQ/15ML, THREE TEASPOONS THREE TIMES DAILY, ORAL
     Route: 048
     Dates: start: 20040524, end: 20040608
  2. POTASSIUM CHLORIDE TABLETS, 20MEQ (ETHEX) [Suspect]
     Indication: HYPOKALAEMIA
     Dosage: 20MEQ, EIGHT TABLETS FOUR TIMES DAILY, ORAL
     Route: 048
     Dates: start: 20040608, end: 20040609

REACTIONS (2)
  - BLOOD POTASSIUM DECREASED [None]
  - BLOOD POTASSIUM INCREASED [None]
